FAERS Safety Report 4957260-8 (Version None)
Quarter: 2006Q1

REPORT INFORMATION
  Report Type: 
  Country: None (occurrence: None)
  Receive Date: 20060329
  Receipt Date: 20060221
  Transmission Date: 20060701
  Serious: Yes (Hospitalization, Other)
  Sender: FDA-Public Use
  Company Number: US-MERCK-0602USA05226

PATIENT
  Age: 61 Year
  Sex: Male
  Weight: 116 kg

DRUGS (30)
  1. ZETIA [Concomitant]
     Route: 065
  2. ALTACE [Concomitant]
     Route: 065
  3. TOPAMAX [Concomitant]
     Route: 065
  4. VERAPAMIL MSD LP [Concomitant]
     Route: 065
  5. NEURONTIN [Concomitant]
     Route: 065
  6. LEXAPRO [Concomitant]
     Route: 065
  7. CELEBREX [Concomitant]
     Route: 065
  8. [THERAPY UNSPECIFIED] [Concomitant]
     Indication: PAIN
     Route: 065
  9. VIOXX [Suspect]
     Indication: ARTHRITIS
     Route: 048
     Dates: start: 20030801, end: 20040716
  10. VICODIN ES [Concomitant]
     Indication: PAIN
     Route: 048
  11. METFORMIN HYDROCHLORIDE [Concomitant]
     Route: 065
  12. LANTUS [Concomitant]
     Indication: DIABETES MELLITUS
     Route: 065
  13. TYLENOL (CAPLET) [Concomitant]
     Indication: ARTHRITIS
     Route: 065
  14. ALDACTONE [Concomitant]
     Route: 065
  15. AVAPRO [Concomitant]
     Indication: HYPERTENSION
     Route: 065
  16. AVANDIA [Concomitant]
     Indication: DIABETES MELLITUS
     Route: 065
  17. BYETTA [Concomitant]
     Indication: DIABETES MELLITUS
     Route: 065
  18. COREG [Concomitant]
     Indication: CARDIAC FAILURE
     Route: 065
  19. COREG [Concomitant]
     Indication: HYPERTENSION
     Route: 065
  20. CYMBALTA [Concomitant]
     Indication: ANXIETY
     Route: 065
  21. INSPIR [Concomitant]
     Indication: CARDIAC FAILURE
     Route: 065
  22. INSPIR [Concomitant]
     Indication: HYPERTENSION
     Route: 065
  23. MIDODRINE HYDROCHLORIDE [Concomitant]
     Indication: DIZZINESS
     Route: 065
  24. PLAVIX [Concomitant]
     Indication: CARDIAC DISORDER
     Route: 065
  25. TRICOR [Concomitant]
     Indication: BLOOD CHOLESTEROL
     Route: 065
  26. ASPIRIN [Concomitant]
     Route: 065
     Dates: start: 20031125
  27. PRANDIN [Concomitant]
     Route: 065
  28. COZAAR [Concomitant]
     Route: 065
  29. PRAVACHOL [Concomitant]
     Route: 065
  30. ACTOS [Concomitant]
     Route: 065

REACTIONS (17)
  - ACUTE MYOCARDIAL INFARCTION [None]
  - AGITATION [None]
  - ARTERIOSCLEROSIS [None]
  - BLOOD GLUCOSE INCREASED [None]
  - CARDIAC DISORDER [None]
  - CARDIAC FAILURE CONGESTIVE [None]
  - CORONARY ARTERY DISEASE [None]
  - DEPRESSION [None]
  - FLUID RETENTION [None]
  - HAEMATOMA [None]
  - HAEMORRHOIDS [None]
  - ISCHAEMIC CARDIOMYOPATHY [None]
  - MYOCARDIAL INFARCTION [None]
  - PROTEINURIA [None]
  - RENAL FAILURE CHRONIC [None]
  - ROTATOR CUFF SYNDROME [None]
  - SINUS BRADYCARDIA [None]
